FAERS Safety Report 6964867-5 (Version None)
Quarter: 2010Q3

REPORT INFORMATION
  Report Type: 
  Country: None (occurrence: None)
  Receive Date: 20100903
  Receipt Date: 20100824
  Transmission Date: 20110219
  Serious: Yes (Death, Life-Threatening)
  Sender: FDA-Public Use
  Company Number: DE-NOVOPROD-304117

PATIENT
  Age: 8 Month
  Sex: Female

DRUGS (1)
  1. NOVOSEVEN [Suspect]
     Indication: HAEMORRHAGE
     Dosage: 1 MG, QD
     Route: 042

REACTIONS (2)
  - THROMBOSIS [None]
  - THROMBOSIS IN DEVICE [None]
